FAERS Safety Report 4830877-7 (Version None)
Quarter: 2005Q4

REPORT INFORMATION
  Report Type: 
  Country: None (occurrence: None)
  Receive Date: 20051117
  Receipt Date: 20051110
  Transmission Date: 20060501
  Serious: Yes (Hospitalization)
  Sender: FDA-Public Use
  Company Number: US-MERCK-0511USA01926

PATIENT
  Age: 74 Year
  Sex: Male
  Weight: 68 kg

DRUGS (4)
  1. VIOXX [Suspect]
     Indication: PAIN
     Route: 048
     Dates: start: 20010101, end: 20031024
  2. VIOXX [Suspect]
     Route: 048
     Dates: start: 20010101, end: 20031024
  3. VIOXX [Suspect]
     Route: 048
     Dates: start: 20010101, end: 20031024
  4. PREVACID [Concomitant]
     Route: 065

REACTIONS (2)
  - OVERDOSE [None]
  - TRANSIENT ISCHAEMIC ATTACK [None]
